FAERS Safety Report 21004649 (Version 1)
Quarter: 2022Q2

REPORT INFORMATION
  Report Type: Other
  Country: CN (occurrence: CN)
  Receive Date: 20220624
  Receipt Date: 20220624
  Transmission Date: 20220721
  Serious: Yes (Other)
  Sender: FDA-Public Use
  Company Number: CN-PARATEK PHARMACEUTICALS, INC.-2022PTK00199

PATIENT
  Age: 24 Year
  Sex: Female
  Weight: 43 kg

DRUGS (3)
  1. NUZYRA [Suspect]
     Active Substance: OMADACYCLINE
     Indication: Pyrexia
     Dosage: 100 MG, 1X/DAY
     Route: 041
     Dates: start: 20220606, end: 20220610
  2. RABEPRAZOLE SODIUM [Suspect]
     Active Substance: RABEPRAZOLE SODIUM
     Indication: Prophylaxis
     Dosage: 20 MG, 1X/DAY
     Route: 048
     Dates: start: 20220604, end: 20220610
  3. QUINACYCLINE [Concomitant]
     Dosage: 0.1 G, 2X/DAY
     Dates: start: 20220604, end: 20220606

REACTIONS (1)
  - Mixed liver injury [Unknown]

NARRATIVE: CASE EVENT DATE: 20220609
